FAERS Safety Report 9371817 (Version 1)
Quarter: 2013Q2

REPORT INFORMATION
  Report Type: Spontaneous
  Country: US (occurrence: None)
  Receive Date: 20130625
  Receipt Date: 20130625
  Transmission Date: 20140414
  Serious: Yes (Hospitalization)
  Sender: FDA-Public Use
  Company Number: SP06769

PATIENT
  Sex: Male

DRUGS (1)
  1. COLAZAL [Suspect]
     Route: 048
     Dates: start: 201306

REACTIONS (2)
  - Gastrointestinal disorder [None]
  - Abscess [None]
